FAERS Safety Report 8792653 (Version 1)
Quarter: 2012Q4

REPORT INFORMATION
  Report Type: 
  Country: US (occurrence: US)
  Receive Date: 20120918
  Receipt Date: 20120918
  Transmission Date: 20130627
  Serious: Yes (Death)
  Sender: FDA-Public Use
  Company Number: US-GLAXOSMITHKLINE-A0814597A

PATIENT
  Sex: Male

DRUGS (2)
  1. AVANDIA [Suspect]
     Indication: TYPE 2 DIABETES MELLITUS
     Dosage: 4MG Unknown
     Route: 048
  2. AVANDAMET [Suspect]
     Indication: TYPE 2 DIABETES MELLITUS
     Route: 048

REACTIONS (6)
  - Coronary artery disease [Fatal]
  - Sudden cardiac death [Fatal]
  - Hypertensive heart disease [Unknown]
  - Coronary artery disease [Unknown]
  - Cardiovascular disorder [Unknown]
  - Condition aggravated [Unknown]
